FAERS Safety Report 17848203 (Version 2)
Quarter: 2020Q2

REPORT INFORMATION
  Report Type: Spontaneous
  Country: JP (occurrence: JP)
  Receive Date: 20200601
  Receipt Date: 20200608
  Transmission Date: 20200714
  Serious: Yes (Other)
  Sender: FDA-Public Use
  Company Number: JP-ELI_LILLY_AND_COMPANY-JP202005010310

PATIENT
  Age: 59 Year
  Sex: Male

DRUGS (2)
  1. TALTZ [Suspect]
     Active Substance: IXEKIZUMAB
     Indication: PSORIASIS
     Dosage: 80 MG, UNKNOWN
     Route: 058
     Dates: start: 20190424, end: 20200526
  2. OXAROL [Concomitant]
     Active Substance: MAXACALCITOL
     Dosage: UNK
     Route: 062
     Dates: start: 201010

REACTIONS (1)
  - Malignant melanoma [Recovering/Resolving]
